FAERS Safety Report 6348587-6 (Version None)
Quarter: 2009Q3

REPORT INFORMATION
  Report Type: 
  Country: None (occurrence: None)
  Receive Date: 20090908
  Receipt Date: 20090827
  Transmission Date: 20100115
  Serious: Yes (Hospitalization, Other)
  Sender: FDA-Public Use
  Company Number: JPI-P-007791

PATIENT
  Age: 22 Year
  Sex: Female
  Weight: 65.7716 kg

DRUGS (6)
  1. XYREM [Suspect]
     Indication: CATAPLEXY
     Dosage: 4.5 GM (2.25 GM, 2 IN 1 D), ORAL; 6 GM (3 GM, 2 IN 1 D), ORAL
     Route: 048
     Dates: start: 20080401, end: 20080901
  2. XYREM [Suspect]
     Indication: NARCOLEPSY
     Dosage: 4.5 GM (2.25 GM, 2 IN 1 D), ORAL; 6 GM (3 GM, 2 IN 1 D), ORAL
     Route: 048
     Dates: start: 20080401, end: 20080901
  3. XYREM [Suspect]
     Indication: CATAPLEXY
     Dosage: 4.5 GM (2.25 GM, 2 IN 1 D), ORAL; 6 GM (3 GM, 2 IN 1 D), ORAL
     Route: 048
     Dates: start: 20090101, end: 20090819
  4. XYREM [Suspect]
     Indication: NARCOLEPSY
     Dosage: 4.5 GM (2.25 GM, 2 IN 1 D), ORAL; 6 GM (3 GM, 2 IN 1 D), ORAL
     Route: 048
     Dates: start: 20090101, end: 20090819
  5. MODAFINIL [Concomitant]
  6. ESCITALOPRAM OXALATE [Concomitant]

REACTIONS (15)
  - ADHESION [None]
  - CERVIX ERYTHEMA [None]
  - DRUG EXPOSURE DURING PREGNANCY [None]
  - INCISION SITE INFECTION [None]
  - LYMPHADENOPATHY [None]
  - MENINGITIS BACTERIAL [None]
  - MYCOPLASMA INFECTION [None]
  - NIGHT SWEATS [None]
  - POLLAKIURIA [None]
  - PREGNANCY [None]
  - PYREXIA [None]
  - RASH GENERALISED [None]
  - SNORING [None]
  - VOMITING [None]
  - WEIGHT DECREASED [None]
